FAERS Safety Report 14274228 (Version 1)
Quarter: 2017Q4

REPORT INFORMATION
  Report Type: Spontaneous
  Country: US (occurrence: US)
  Receive Date: 20171211
  Receipt Date: 20171211
  Transmission Date: 20180321
  Serious: Yes (Other)
  Sender: FDA-Public Use
  Company Number: US-OTSUKA-2017_002377

PATIENT

DRUGS (3)
  1. ABILIFY [Suspect]
     Active Substance: ARIPIPRAZOLE
     Indication: MAJOR DEPRESSION
     Dosage: UNK
     Route: 065
     Dates: start: 20041112, end: 20150327
  2. ABILIFY [Suspect]
     Active Substance: ARIPIPRAZOLE
     Indication: HALLUCINATION, AUDITORY
     Dosage: UNK
     Route: 065
  3. ABILIFY [Suspect]
     Active Substance: ARIPIPRAZOLE
     Indication: ANXIETY
     Dosage: UNK
     Route: 065

REACTIONS (11)
  - Suicidal ideation [Recovered/Resolved]
  - Suicide attempt [Unknown]
  - Mental disorder [Unknown]
  - Gambling [Unknown]
  - Injury [Unknown]
  - Excoriation [Recovered/Resolved]
  - Eating disorder [Recovered/Resolved]
  - Emotional distress [Unknown]
  - Brain injury [Unknown]
  - Surgery [Unknown]
  - Trichotillomania [Recovered/Resolved]
